FAERS Safety Report 8457868-1 (Version None)
Quarter: 2012Q2

REPORT INFORMATION
  Report Type: 
  Country: None (occurrence: None)
  Receive Date: 20120622
  Receipt Date: 20120615
  Transmission Date: 20120825
  Serious: Yes (Other)
  Sender: FDA-Public Use
  Company Number: US-JNJFOC-20120608279

PATIENT
  Sex: Male
  Weight: 74.84 kg

DRUGS (2)
  1. STELARA [Suspect]
     Indication: PSORIASIS
     Route: 058
     Dates: start: 20110901
  2. ANTIPSORIATICS FOR TOPICAL USE [Concomitant]
     Indication: PSORIASIS
     Route: 061
     Dates: start: 20110101

REACTIONS (1)
  - FUNGAL INFECTION [None]
